FAERS Safety Report 21807846 (Version 1)
Quarter: 2023Q1

REPORT INFORMATION
  Report Type: Spontaneous
  Country: US (occurrence: US)
  Receive Date: 20230103
  Receipt Date: 20230103
  Transmission Date: 20230418
  Serious: No
  Sender: FDA-Public Use
  Company Number: US-TEVA-2022-US-2837839

PATIENT
  Sex: Female

DRUGS (1)
  1. ESTRADIOL [Suspect]
     Active Substance: ESTRADIOL
     Indication: Product used for unknown indication
     Route: 065

REACTIONS (6)
  - Allergic reaction to excipient [Unknown]
  - Oedema peripheral [Unknown]
  - Weight increased [Unknown]
  - Erythema [Unknown]
  - Dyspnoea [Unknown]
  - Abdominal pain upper [Unknown]
